FAERS Safety Report 8542240-6 (Version None)
Quarter: 2012Q3

REPORT INFORMATION
  Report Type: 
  Country: None (occurrence: None)
  Receive Date: 20120726
  Receipt Date: 20111005
  Transmission Date: 20120928
  Serious: No
  Sender: FDA-Public Use
  Company Number: US-ASTRAZENECA-2011SE59903

PATIENT
  Age: 59 Year
  Sex: Female

DRUGS (4)
  1. TOPAMAX [Concomitant]
  2. SEROQUEL [Suspect]
     Indication: PSYCHOTIC DISORDER
     Route: 048
     Dates: start: 20090101
  3. SEROQUEL [Suspect]
     Route: 048
  4. EFFEXOR [Concomitant]

REACTIONS (2)
  - INTENTIONAL DRUG MISUSE [None]
  - DRUG INEFFECTIVE [None]
